FAERS Safety Report 4314819-9 (Version None)
Quarter: 2004Q1

REPORT INFORMATION
  Report Type: 
  Country: None (occurrence: None)
  Receive Date: 20040310
  Receipt Date: 20040218
  Transmission Date: 20041129
  Serious: Yes (Hospitalization)
  Sender: FDA-Public Use
  Company Number: PHBS2004NL02499

PATIENT
  Age: 48 Year
  Sex: Male
  Weight: 120 kg

DRUGS (5)
  1. LESCOL XL [Suspect]
     Indication: HYPERCHOLESTEROLAEMIA
     Dosage: 80 MG, UNK
     Route: 048
     Dates: start: 20030729, end: 20031222
  2. MICARDIS [Concomitant]
     Dosage: 20 MG, UNK
  3. CARBASALATE CALCIUM [Concomitant]
     Dosage: 38 MG, UNK
  4. CO-TRIMOXAZOLE [Concomitant]
     Indication: SINUSITIS
  5. BECONASE [Concomitant]

REACTIONS (5)
  - ACUTE CORONARY SYNDROME [None]
  - MYALGIA [None]
  - SENSATION OF HEAVINESS [None]
  - STENT PLACEMENT [None]
  - TROPONIN INCREASED [None]
